FAERS Safety Report 9890856 (Version 2)
Quarter: 2014Q1

REPORT INFORMATION
  Report Type: Spontaneous
  Country: DE (occurrence: DE)
  Receive Date: 20140212
  Receipt Date: 20140303
  Transmission Date: 20141002
  Serious: Yes (Other)
  Sender: FDA-Public Use
  Company Number: DE-ASTELLAS-2014EU000971

PATIENT
  Age: 82 Year
  Sex: Male

DRUGS (1)
  1. XTANDI [Suspect]
     Dosage: 4 DF, UNKNOWN/D
     Route: 065
     Dates: start: 201310

REACTIONS (3)
  - Extremity necrosis [Unknown]
  - Toe amputation [Unknown]
  - General physical health deterioration [Unknown]
